FAERS Safety Report 5531359-X (Version None)
Quarter: 2007Q4

REPORT INFORMATION
  Report Type: 
  Country: None (occurrence: None)
  Receive Date: 20071127
  Receipt Date: 20071119
  Transmission Date: 20080405
  Serious: Yes (Death)
  Sender: FDA-Public Use
  Company Number: TPG2007A00740

PATIENT
  Age: 78 Year
  Sex: Female

DRUGS (10)
  1. ACTOS [Suspect]
     Indication: DIABETES MELLITUS
     Dosage: 30 MG (30 MG, 1 IN 1 D) PER ORAL
     Route: 048
     Dates: end: 20060905
  2. MIXTARD HUMAN 70/30 [Suspect]
     Indication: DIABETES MELLITUS
     Dosage: 40 IU (20 IU, 2 IN 1 D) SUBCUTANEOUS; 30 IU (30 IU, 1 IN 1 D) SUBCUTANEOUS
     Route: 058
     Dates: end: 20060904
  3. MIXTARD HUMAN 70/30 [Suspect]
     Indication: DIABETES MELLITUS
     Dosage: 40 IU (20 IU, 2 IN 1 D) SUBCUTANEOUS; 30 IU (30 IU, 1 IN 1 D) SUBCUTANEOUS
     Route: 058
     Dates: start: 20060905, end: 20060905
  4. METFORMIN HCL [Suspect]
     Indication: DIABETES MELLITUS
     Dosage: 1700 MG (, 1-0-1) PER ORAL
     Route: 048
     Dates: end: 20060905
  5. METOPROLOL SUCCINATE [Suspect]
     Dosage: 50 MG (50 MG, 1 IN 1 D) PER ORAL
     Route: 048
     Dates: end: 20060905
  6. COVERSUM COMBI (INDAPAMIDE, PERINDOPRIL) [Suspect]
     Dosage: PERINDOPRIL-ERBUMIN 4 MG, INDAPAMIDE 1,25 MG PER ORAL
     Route: 048
     Dates: end: 20060905
  7. ACETYLSALICYLIC ACID SRT [Suspect]
     Indication: PROPHYLAXIS
     Dosage: 300 MG (300 MG, 1-0-0) PER ORAL
     Route: 048
     Dates: end: 20060905
  8. TOREM (TORASEMIDE) [Concomitant]
  9. ATORVASTATIN CALCIUM [Concomitant]
  10. LANSOPRAZOLE [Concomitant]

REACTIONS (3)
  - HYPOGLYCAEMIA [None]
  - INCORRECT DOSE ADMINISTERED [None]
  - MEDICATION ERROR [None]
